FAERS Safety Report 19258764 (Version 1)
Quarter: 2021Q2

REPORT INFORMATION
  Report Type: Report from Study
  Country: GT (occurrence: GT)
  Receive Date: 20210514
  Receipt Date: 20210514
  Transmission Date: 20210717
  Serious: Yes (Other)
  Sender: FDA-Public Use
  Company Number: NVSC2021GT103538

PATIENT
  Sex: Female

DRUGS (1)
  1. SCAPHO [Suspect]
     Active Substance: SECUKINUMAB
     Indication: ANKYLOSING SPONDYLITIS
     Dosage: 150 MG, QMO
     Route: 058
     Dates: start: 20191014

REACTIONS (7)
  - General physical health deterioration [Unknown]
  - Musculoskeletal discomfort [Unknown]
  - Pain [Unknown]
  - Drug ineffective [Unknown]
  - Fear [Unknown]
  - Gait inability [Unknown]
  - Posture abnormal [Unknown]
